FAERS Safety Report 5866258-7 (Version None)
Quarter: 2008Q3

REPORT INFORMATION
  Report Type: 
  Country: None (occurrence: None)
  Receive Date: 20080829
  Receipt Date: 20080821
  Transmission Date: 20090109
  Serious: Yes (Hospitalization, Other)
  Sender: FDA-Public Use
  Company Number: KR-PFIZER INC-2008070320

PATIENT
  Age: 29 Year
  Sex: Female

DRUGS (5)
  1. CELECOXIB [Suspect]
     Indication: ARTHRITIS
     Dates: start: 20040317, end: 20040101
  2. ISONIAZID [Suspect]
     Indication: PULMONARY TUBERCULOSIS
     Dates: start: 20040325, end: 20040101
  3. PYRAZINAMIDE [Suspect]
     Indication: PULMONARY TUBERCULOSIS
  4. RIFAMPIN [Suspect]
     Indication: PULMONARY TUBERCULOSIS
  5. ETHAMBUTOL HCL [Suspect]
     Indication: PULMONARY TUBERCULOSIS

REACTIONS (3)
  - DRUG RASH WITH EOSINOPHILIA AND SYSTEMIC SYMPTOMS [None]
  - HEPATOMEGALY [None]
  - PLEURAL EFFUSION [None]
